FAERS Safety Report 5230260-9 (Version None)
Quarter: 2007Q1

REPORT INFORMATION
  Report Type: 
  Country: None (occurrence: None)
  Receive Date: 20070206
  Receipt Date: 20061026
  Transmission Date: 20070707
  Serious: No
  Sender: FDA-Public Use
  Company Number: US-GLAXOSMITHKLINE-A0625084A

PATIENT
  Age: 39 Year
  Sex: Female

DRUGS (4)
  1. PAXIL CR [Suspect]
     Dosage: 12.5MG PER DAY
     Route: 048
     Dates: start: 20060401, end: 20061021
  2. WELLBUTRIN XL [Suspect]
     Indication: ANXIETY
     Dosage: 150MG PER DAY
     Route: 048
     Dates: start: 20060401
  3. LEVOTHYROXINE SODIUM [Concomitant]
  4. LUPRON [Concomitant]

REACTIONS (6)
  - BRUXISM [None]
  - CONFUSIONAL STATE [None]
  - DIZZINESS [None]
  - LOCAL SWELLING [None]
  - ORAL INFECTION [None]
  - PARAESTHESIA [None]
